FAERS Safety Report 13021467 (Version 2)
Quarter: 2017Q1

REPORT INFORMATION
  Report Type: Spontaneous
  Country: FR (occurrence: FR)
  Receive Date: 20161213
  Receipt Date: 20170210
  Transmission Date: 20170428
  Serious: Yes (Hospitalization)
  Sender: FDA-Public Use
  Company Number: FR-ASTRAZENECA-2016SF30957

PATIENT
  Age: 27318 Day
  Sex: Female

DRUGS (9)
  1. SPIRIVA [Suspect]
     Active Substance: TIOTROPIUM BROMIDE MONOHYDRATE
     Route: 055
  2. XARELTO [Suspect]
     Active Substance: RIVAROXABAN
     Route: 048
     Dates: end: 20161114
  3. LASILIX [Suspect]
     Active Substance: FUROSEMIDE
     Route: 048
  4. SYMBICORT [Suspect]
     Active Substance: BUDESONIDE\FORMOTEROL FUMARATE DIHYDRATE
     Route: 055
  5. DIFFU K [Suspect]
     Active Substance: POTASSIUM CHLORIDE
     Route: 048
  6. KETODERM [Suspect]
     Active Substance: KETOCONAZOLE
     Route: 003
  7. DUPHALAC [Suspect]
     Active Substance: LACTULOSE
     Route: 048
  8. PANTOPRAZOLE [Suspect]
     Active Substance: PANTOPRAZOLE SODIUM
     Route: 048
  9. ECONAZOLE [Suspect]
     Active Substance: ECONAZOLE
     Route: 003

REACTIONS (4)
  - Atrial fibrillation [Unknown]
  - Acute kidney injury [Recovered/Resolved]
  - Hepatocellular injury [Recovered/Resolved]
  - Cardiopulmonary failure [Unknown]

NARRATIVE: CASE EVENT DATE: 20161114
